FAERS Safety Report 9489595 (Version 2)
Quarter: 2014Q2

REPORT INFORMATION
  Report Type: Spontaneous
  Country: US (occurrence: US)
  Receive Date: 20130829
  Receipt Date: 20140512
  Transmission Date: 20141212
  Serious: Yes (Other)
  Sender: FDA-Public Use
  Company Number: CHPA2013US013476

PATIENT
  Age: 72 Year
  Sex: Female

DRUGS (3)
  1. EXCEDRIN ES BACK + BODY [Suspect]
     Indication: BACK PAIN
     Dosage: 2 DF, PRN
     Route: 048
  2. EXCEDRIN ES BACK + BODY [Suspect]
     Indication: FRACTURE PAIN
  3. EXCEDRIN ES BACK + BODY [Suspect]
     Indication: OFF LABEL USE

REACTIONS (1)
  - Spinal fracture [Recovered/Resolved]
